FAERS Safety Report 9123921 (Version 2)
Quarter: 2013Q2

REPORT INFORMATION
  Report Type: Spontaneous
  Country: US (occurrence: US)
  Receive Date: 20130227
  Receipt Date: 20130424
  Transmission Date: 20140414
  Serious: No
  Sender: FDA-Public Use
  Company Number: US-PFIZER INC-2013068654

PATIENT
  Age: 4 Year
  Sex: Male

DRUGS (2)
  1. CHILDRENS ADVIL [Suspect]
     Dosage: UNK
  2. CHILDRENS ADVIL [Suspect]
     Dosage: UNK

REACTIONS (1)
  - Allergy to chemicals [Unknown]
